FAERS Safety Report 15290281 (Version 1)
Quarter: 2018Q3

REPORT INFORMATION
  Report Type: Spontaneous
  Country: US (occurrence: US)
  Receive Date: 20180804
  Receipt Date: 20180804
  Transmission Date: 20181010
  Serious: Yes (Hospitalization, Other)
  Sender: FDA-Public Use
  Company Number: None

PATIENT
  Age: 25 Year
  Sex: Female
  Weight: 68.04 kg

DRUGS (5)
  1. ADVIL [Concomitant]
     Active Substance: IBUPROFEN
  2. BIOTIN [Concomitant]
     Active Substance: BIOTIN
  3. ALEVE [Concomitant]
     Active Substance: NAPROXEN SODIUM
  4. VITAMINS [Concomitant]
     Active Substance: VITAMINS
  5. PARAGARD T 380A [Suspect]
     Active Substance: COPPER

REACTIONS (6)
  - Sepsis [None]
  - Pelvic pain [None]
  - Pelvic infection [None]
  - Pelvic inflammatory disease [None]
  - Eye infection [None]
  - Vaginal infection [None]

NARRATIVE: CASE EVENT DATE: 20180308
